FAERS Safety Report 7520741-7 (Version None)
Quarter: 2011Q2

REPORT INFORMATION
  Report Type: 
  Country: None (occurrence: None)
  Receive Date: 20110603
  Receipt Date: 20101014
  Transmission Date: 20111010
  Serious: Yes (Hospitalization)
  Sender: FDA-Public Use
  Company Number: US-BAYER-200942699NA

PATIENT
  Age: 19 Year
  Sex: Female
  Weight: 82 kg

DRUGS (8)
  1. YASMIN [Suspect]
     Indication: CONTRACEPTION
     Dosage: UNK UNK, QD
     Route: 048
     Dates: start: 20060101
  2. DROSPIRENONE AND ETHINYL ESTRADIOL [Suspect]
     Indication: CONTRACEPTION
     Dates: start: 20080101
  3. HYDROCODONE BITARTRATE AND ACETAMINOPHEN [Concomitant]
     Dosage: 5/500 MG
  4. MEPROZINE [Concomitant]
  5. ULTRAM [Concomitant]
  6. PHENTERMINE [Concomitant]
  7. YAZ [Suspect]
     Dosage: UNK UNK, QD
     Route: 048
     Dates: start: 20070101, end: 20100101
  8. YAZ [Suspect]
     Indication: CONTRACEPTION
     Dosage: UNK UNK, QD
     Route: 048
     Dates: start: 20060101, end: 20070101

REACTIONS (10)
  - PAIN [None]
  - HYPERPLASTIC CHOLECYSTOPATHY [None]
  - CHOLECYSTITIS CHRONIC [None]
  - MURPHY'S SIGN POSITIVE [None]
  - GALLBLADDER DISORDER [None]
  - ABDOMINAL PAIN UPPER [None]
  - VOMITING [None]
  - PAINFUL RESPIRATION [None]
  - NAUSEA [None]
  - INJURY [None]
